FAERS Safety Report 4510565-7 (Version None)
Quarter: 2004Q4

REPORT INFORMATION
  Report Type: 
  Country: None (occurrence: None)
  Receive Date: 20041122
  Receipt Date: 20041105
  Transmission Date: 20050328
  Serious: Yes (Death, Hospitalization)
  Sender: FDA-Public Use
  Company Number: A-CH2004-07107

PATIENT
  Age: 70 Year
  Sex: Female

DRUGS (2)
  1. TRACLEER [Suspect]
     Indication: PULMONARY HYPERTENSION
     Dosage: SEE IMAGE
     Route: 048
     Dates: start: 20040301, end: 20040328
  2. DIURETICS [Concomitant]

REACTIONS (19)
  - ANAEMIA [None]
  - BILIARY TRACT DISORDER [None]
  - BLOOD CULTURE POSITIVE [None]
  - CIRCULATORY COLLAPSE [None]
  - CONDITION AGGRAVATED [None]
  - DEPRESSION [None]
  - EXTREMITY NECROSIS [None]
  - FALL [None]
  - FEMORAL NECK FRACTURE [None]
  - GENERAL PHYSICAL HEALTH DETERIORATION [None]
  - HAEMODYNAMIC INSTABILITY [None]
  - MALIGNANT NEOPLASM OF AMPULLA OF VATER [None]
  - POST PROCEDURAL COMPLICATION [None]
  - PULMONARY HYPERTENSION [None]
  - RENAL ABSCESS [None]
  - SHOCK [None]
  - STAPHYLOCOCCAL INFECTION [None]
  - SUPRAVENTRICULAR TACHYCARDIA [None]
  - URINARY TRACT INFECTION ENTEROCOCCAL [None]
